FAERS Safety Report 23712571 (Version 1)
Quarter: 2024Q2

REPORT INFORMATION
  Report Type: Spontaneous
  Country: DE (occurrence: None)
  Receive Date: 20240405
  Receipt Date: 20240405
  Transmission Date: 20240716
  Serious: Yes (Other)
  Sender: FDA-Public Use
  Company Number: 2024A082008

PATIENT
  Age: 42 Year
  Sex: Female
  Weight: 55.3 kg

DRUGS (18)
  1. QUETIAPINE [Suspect]
     Active Substance: QUETIAPINE
  2. CLONAZEPAM [Suspect]
     Active Substance: CLONAZEPAM
     Indication: Product used for unknown indication
  3. ABILIFY [Suspect]
     Active Substance: ARIPIPRAZOLE
     Indication: Bipolar disorder
     Dosage: UNK (HALF DOSE)
  4. ABILIFY [Suspect]
     Active Substance: ARIPIPRAZOLE
     Indication: Schizophrenia
     Dosage: UNK (HALF DOSE)
  5. EFFEXOR [Suspect]
     Active Substance: VENLAFAXINE HYDROCHLORIDE
     Indication: Product used for unknown indication
  6. ZOLOFT [Suspect]
     Active Substance: SERTRALINE HYDROCHLORIDE
     Indication: Product used for unknown indication
  7. TRAZODONE HYDROCHLORIDE [Suspect]
     Active Substance: TRAZODONE HYDROCHLORIDE
     Indication: Product used for unknown indication
  8. ADDERALL [Suspect]
     Active Substance: AMPHETAMINE ASPARTATE\AMPHETAMINE SULFATE\DEXTROAMPHETAMINE SACCHARATE\DEXTROAMPHETAMINE SULFATE
     Indication: Product used for unknown indication
     Dosage: UNK (4 HOUR ONES AND 2 20S JUST UPPED TO GIVE THIRD 20UNK),
  9. ALBUTEROL [Suspect]
     Active Substance: ALBUTEROL
     Indication: Product used for unknown indication
  10. FLINTSTONOS [Concomitant]
     Indication: Product used for unknown indication
  11. NEURONTIN [Concomitant]
     Active Substance: GABAPENTIN
  12. LORAZEPAM [Concomitant]
     Active Substance: LORAZEPAM
  13. ADVAIR HFA [Concomitant]
     Active Substance: FLUTICASONE PROPIONATE\SALMETEROL XINAFOATE
  14. TIZANIDINE [Concomitant]
     Active Substance: TIZANIDINE
  15. VENLAFAXINE [Concomitant]
     Active Substance: VENLAFAXINE HYDROCHLORIDE
  16. RESTASIS [Concomitant]
     Active Substance: CYCLOSPORINE
  17. TOPAMAX [Concomitant]
     Active Substance: TOPIRAMATE
  18. RIZATRIPTAN [Concomitant]
     Active Substance: RIZATRIPTAN

REACTIONS (21)
  - Loss of consciousness [Unknown]
  - Homicidal ideation [Unknown]
  - Adverse drug reaction [Unknown]
  - Body height decreased [Unknown]
  - Stress [Unknown]
  - Blood iron decreased [Unknown]
  - Laboratory test abnormal [Unknown]
  - COVID-19 [Not Recovered/Not Resolved]
  - Visual impairment [Unknown]
  - Euphoric mood [Recovering/Resolving]
  - Eye movement disorder [Unknown]
  - Feeling abnormal [Unknown]
  - Presyncope [Unknown]
  - Blood cholesterol increased [Unknown]
  - Memory impairment [Unknown]
  - Nasopharyngitis [Unknown]
  - Dizziness [Unknown]
  - Nausea [Unknown]
  - Headache [Unknown]
  - Heart rate increased [Unknown]
  - Weight increased [Unknown]

NARRATIVE: CASE EVENT DATE: 20200101
